FAERS Safety Report 7965529-8 (Version None)
Quarter: 2011Q4

REPORT INFORMATION
  Report Type: 
  Country: None (occurrence: None)
  Receive Date: 20111208
  Receipt Date: 20111128
  Transmission Date: 20120403
  Serious: Yes (Other)
  Sender: FDA-Public Use
  Company Number: CA-JNJFOC-20111201946

PATIENT
  Sex: Male
  Weight: 71.5 kg

DRUGS (6)
  1. REMICADE [Suspect]
     Indication: RHEUMATOID ARTHRITIS
     Route: 042
  2. REMICADE [Suspect]
     Dosage: 89TH INFUSION
     Route: 042
     Dates: start: 20111128
  3. BENADRYL [Concomitant]
     Route: 048
  4. METHOTREXATE [Concomitant]
  5. PREDNISONE TAB [Concomitant]
  6. EMO-CORT [Concomitant]

REACTIONS (3)
  - HYPERSENSITIVITY [None]
  - FALL [None]
  - CORONARY ARTERY BYPASS [None]
